FAERS Safety Report 5282901-8 (Version None)
Quarter: 2007Q1

REPORT INFORMATION
  Report Type: 
  Country: None (occurrence: None)
  Receive Date: 20070327
  Receipt Date: 20070316
  Transmission Date: 20070707
  Serious: Yes (Death, Life-Threatening, Disabling)
  Sender: FDA-Public Use
  Company Number: 200703AGG00609

PATIENT
  Age: 70 Year
  Sex: Male

DRUGS (5)
  1. AGGRASTAT [Suspect]
     Indication: ACUTE MYOCARDIAL INFARCTION
     Dosage: (INTRAVENOUS (NOT OTHERWISE SPECIFIED))
     Route: 042
     Dates: start: 20070103, end: 20070103
  2. AGGRASTAT [Suspect]
     Indication: ANGINA UNSTABLE
     Dosage: (INTRAVENOUS (NOT OTHERWISE SPECIFIED))
     Route: 042
     Dates: start: 20070103, end: 20070103
  3. LASIX [Concomitant]
  4. ASPIRIN [Concomitant]
  5. VITAMIN K /01542801/ [Concomitant]

REACTIONS (1)
  - CARDIOGENIC SHOCK [None]
